FAERS Safety Report 23028904 (Version 1)
Quarter: 2023Q4

REPORT INFORMATION
  Report Type: Spontaneous
  Country: US (occurrence: None)
  Receive Date: 20231003
  Receipt Date: 20231003
  Transmission Date: 20240109
  Serious: No
  Sender: FDA-Public Use
  Company Number: None

PATIENT
  Age: 76 Year
  Sex: Female

DRUGS (2)
  1. BOTOX [Suspect]
     Active Substance: ONABOTULINUMTOXINA
     Indication: Parkinsonism
     Dosage: INJECYT 200 UNITS INTO RIGHT AND LEFT PAROTID GLANDS EVERY 3 MONTHS AS DIRECTED.?
     Dates: start: 202211
  2. BOTOX [Suspect]
     Active Substance: ONABOTULINUMTOXINA
     Indication: Saliva altered

REACTIONS (1)
  - Parkinson^s disease [None]

NARRATIVE: CASE EVENT DATE: 20230101
